FAERS Safety Report 9648980 (Version 1)
Quarter: 2013Q4

REPORT INFORMATION
  Report Type: Spontaneous
  Country: US (occurrence: None)
  Receive Date: 20131018
  Receipt Date: 20131018
  Transmission Date: 20140711
  Serious: Yes (Other)
  Sender: FDA-Public Use
  Company Number: AEGR000084

PATIENT
  Age: 80 Year
  Sex: Male
  Weight: 88.4 kg

DRUGS (9)
  1. JUXTAPID [Suspect]
     Route: 048
     Dates: start: 20130622, end: 20130713
  2. LOVAXA (OMEGA 3-ACID ETHYL ESTER) [Concomitant]
  3. IMDUR (ISOSORBIDE MONONITRATE) [Concomitant]
  4. TOPROL (METOPROLOL SUCCINATE) [Concomitant]
  5. ATACAND (CANDESARTAN CILEXETIL) [Concomitant]
  6. CELEXA (CITALOPRAM HYDROBROMIDE) [Concomitant]
  7. PLAVIX (CLOPIDOGREL BISULFATE) [Concomitant]
  8. FLOMAX (TAMSULOSIN HYDROCHLORIDE) [Concomitant]
  9. ASA (ACETYLSALICYLIC ACID) [Concomitant]

REACTIONS (2)
  - Diarrhoea [None]
  - Off label use [None]
